FAERS Safety Report 16633152 (Version 1)
Quarter: 2019Q3

REPORT INFORMATION
  Report Type: Report from Study
  Country: DE (occurrence: DE)
  Receive Date: 20190725
  Receipt Date: 20190725
  Transmission Date: 20191004
  Serious: Yes (Other)
  Sender: FDA-Public Use
  Company Number: DE-MYLANLABS-2019M1069113

PATIENT
  Age: 60 Year
  Sex: Female

DRUGS (24)
  1. CEFTRIAXONE. [Suspect]
     Active Substance: CEFTRIAXONE
     Indication: SERRATIA INFECTION
  2. ACETAZOLAMIDE. [Suspect]
     Active Substance: ACETAZOLAMIDE
     Indication: ULCERATIVE KERATITIS
     Dosage: UNK
     Route: 048
  3. ACETAZOLAMIDE. [Suspect]
     Active Substance: ACETAZOLAMIDE
     Indication: PSEUDOMONAS INFECTION
  4. POLYHEXANIDE [Suspect]
     Active Substance: POLIHEXANIDE
     Indication: SERRATIA INFECTION
  5. PROPAMIDINE ISETIONATE [Suspect]
     Active Substance: PROPAMIDINE ISETHIONATE
     Indication: ULCERATIVE KERATITIS
     Dosage: UNK
     Route: 050
  6. GRAMICIDIN W/NEOMYCIN SULFATE/POLYMYCIN B [Suspect]
     Active Substance: GRAMICIDIN\NEOMYCIN SULFATE\POLYMYXIN B SULFATE
     Indication: PSEUDOMONAS INFECTION
  7. CEFTRIAXONE. [Suspect]
     Active Substance: CEFTRIAXONE
     Indication: ULCERATIVE KERATITIS
     Dosage: UNK
     Route: 042
  8. CEFTRIAXONE. [Suspect]
     Active Substance: CEFTRIAXONE
     Indication: PSEUDOMONAS INFECTION
  9. CYCLOPENTOLATE. [Suspect]
     Active Substance: CYCLOPENTOLATE
     Indication: ULCERATIVE KERATITIS
     Dosage: UNK
     Route: 050
  10. PROPAMIDINE ISETIONATE [Suspect]
     Active Substance: PROPAMIDINE ISETHIONATE
     Indication: PSEUDOMONAS INFECTION
  11. OFLOXACIN. [Suspect]
     Active Substance: OFLOXACIN
     Indication: ULCERATIVE KERATITIS
     Dosage: UNK
     Route: 050
  12. OFLOXACIN. [Suspect]
     Active Substance: OFLOXACIN
     Indication: PSEUDOMONAS INFECTION
  13. GRAMICIDIN W/NEOMYCIN SULFATE/POLYMYCIN B [Suspect]
     Active Substance: GRAMICIDIN\NEOMYCIN SULFATE\POLYMYXIN B SULFATE
     Indication: ULCERATIVE KERATITIS
     Dosage: UNK
     Route: 050
  14. GRAMICIDIN W/NEOMYCIN SULFATE/POLYMYCIN B [Suspect]
     Active Substance: GRAMICIDIN\NEOMYCIN SULFATE\POLYMYXIN B SULFATE
     Indication: SERRATIA INFECTION
  15. ACETAZOLAMIDE. [Suspect]
     Active Substance: ACETAZOLAMIDE
     Indication: SERRATIA INFECTION
  16. CLINDAMYCIN. [Suspect]
     Active Substance: CLINDAMYCIN
     Indication: ULCERATIVE KERATITIS
     Dosage: UNK
     Route: 042
  17. CLINDAMYCIN. [Suspect]
     Active Substance: CLINDAMYCIN
     Indication: PSEUDOMONAS INFECTION
  18. CLINDAMYCIN. [Suspect]
     Active Substance: CLINDAMYCIN
     Indication: SERRATIA INFECTION
  19. POLYHEXANIDE [Suspect]
     Active Substance: POLIHEXANIDE
     Indication: PSEUDOMONAS INFECTION
  20. PROPAMIDINE ISETIONATE [Suspect]
     Active Substance: PROPAMIDINE ISETHIONATE
     Indication: SERRATIA INFECTION
  21. POLYHEXANIDE [Suspect]
     Active Substance: POLIHEXANIDE
     Indication: ULCERATIVE KERATITIS
     Dosage: UNK
     Route: 050
  22. OFLOXACIN. [Suspect]
     Active Substance: OFLOXACIN
     Indication: SERRATIA INFECTION
  23. CYCLOPENTOLATE. [Suspect]
     Active Substance: CYCLOPENTOLATE
     Indication: PSEUDOMONAS INFECTION
  24. CYCLOPENTOLATE. [Suspect]
     Active Substance: CYCLOPENTOLATE
     Indication: SERRATIA INFECTION

REACTIONS (1)
  - Drug ineffective [Unknown]
